FAERS Safety Report 25675340 (Version 1)
Quarter: 2025Q3

REPORT INFORMATION
  Report Type: Report from Study
  Country: EU (occurrence: EU)
  Receive Date: 20250813
  Receipt Date: 20250813
  Transmission Date: 20251020
  Serious: Yes (Other)
  Sender: BAXTER
  Company Number: EU-BAXTER-2025BAX019344

PATIENT
  Sex: Male

DRUGS (5)
  1. OLIMEL E [Suspect]
     Active Substance: AMINO ACIDS\DEXTROSE\ELECTROLYTES NOS\SOYBEAN OIL
     Indication: Parenteral nutrition
     Route: 065
     Dates: start: 20240930
  2. OLIMEL E [Suspect]
     Active Substance: AMINO ACIDS\DEXTROSE\ELECTROLYTES NOS\SOYBEAN OIL
     Dosage: 1000 ML, QOD (EVERY OTHER DAY)
     Route: 065
     Dates: start: 202411
  3. OLIMEL E [Suspect]
     Active Substance: AMINO ACIDS\DEXTROSE\ELECTROLYTES NOS\SOYBEAN OIL
     Indication: Parenteral nutrition
     Route: 065
     Dates: start: 2025
  4. UNSPECIFIED INGREDIENT [Suspect]
     Active Substance: UNSPECIFIED INGREDIENT
     Route: 065
  5. Jonosteril [Concomitant]
     Route: 065
     Dates: start: 2024

REACTIONS (3)
  - Hyperkalaemia [Unknown]
  - Transaminases increased [Not Recovered/Not Resolved]
  - Weight decreased [Unknown]
